FAERS Safety Report 9094364 (Version 1)
Quarter: 2013Q1

REPORT INFORMATION
  Report Type: Spontaneous
  Country: JP (occurrence: JP)
  Receive Date: 20130201
  Receipt Date: 20130201
  Transmission Date: 20140127
  Serious: Yes (Other)
  Sender: FDA-Public Use
  Company Number: JP-ELI_LILLY_AND_COMPANY-JP201301008278

PATIENT
  Sex: Female

DRUGS (2)
  1. FORTEO [Suspect]
     Route: 058
  2. FORTEO [Suspect]
     Route: 058

REACTIONS (4)
  - Hepatic cancer [Not Recovered/Not Resolved]
  - Sense of oppression [Unknown]
  - Feeling abnormal [Unknown]
  - Intentional drug misuse [Unknown]
